FAERS Safety Report 4975837-0 (Version None)
Quarter: 2006Q2

REPORT INFORMATION
  Report Type: 
  Country: None (occurrence: None)
  Receive Date: 20060411
  Receipt Date: 20060329
  Transmission Date: 20061013
  Serious: Yes (Disabling)
  Sender: FDA-Public Use
  Company Number: 8016066

PATIENT
  Age: 40 Year
  Sex: Male

DRUGS (2)
  1. KEPPRA [Suspect]
     Indication: EPILEPSY
     Dates: start: 20060101, end: 20060301
  2. DILANTIN [Concomitant]

REACTIONS (3)
  - DISORIENTATION [None]
  - IMPAIRED WORK ABILITY [None]
  - PARANOIA [None]
